FAERS Safety Report 6884142-7 (Version None)
Quarter: 2010Q3

REPORT INFORMATION
  Report Type: 
  Country: None (occurrence: None)
  Receive Date: 20100727
  Receipt Date: 20100713
  Transmission Date: 20110219
  Serious: Yes (Hospitalization)
  Sender: FDA-Public Use
  Company Number: 311602

PATIENT
  Age: 74 Year
  Sex: Female

DRUGS (1)
  1. NOVORAPID CHU FLEXPEN(INSULIN ASPART) SOLUTION FOR INJECTION, 100U/ML [Suspect]
     Indication: TYPE 1 DIABETES MELLITUS
     Dosage: 22-30U, SUBCUTANEOUS
     Route: 058

REACTIONS (6)
  - DIABETES MELLITUS INADEQUATE CONTROL [None]
  - DRUG INEFFECTIVE [None]
  - HYPERGLYCAEMIA [None]
  - HYPOGLYCAEMIA [None]
  - INSULIN RESISTANCE [None]
  - WEIGHT DECREASED [None]
